FAERS Safety Report 21722113 (Version 1)
Quarter: 2022Q4

REPORT INFORMATION
  Report Type: Spontaneous
  Country: NL (occurrence: NL)
  Receive Date: 20221213
  Receipt Date: 20221213
  Transmission Date: 20230113
  Serious: Yes (Other)
  Sender: FDA-Public Use
  Company Number: NL-002147023-NVSC2022NL039499

PATIENT
  Age: 12 Year
  Sex: Male

DRUGS (1)
  1. PREGABALIN [Suspect]
     Active Substance: PREGABALIN
     Indication: Product used for unknown indication
     Dosage: 75 MILLIGRAM, 75 MG (DOSE (MG/KG)/2.0)
     Route: 048

REACTIONS (4)
  - Mydriasis [Unknown]
  - Prescription drug used without a prescription [Unknown]
  - Accidental overdose [Unknown]
  - Toxicity to various agents [Unknown]
